FAERS Safety Report 9258003 (Version 1)
Quarter: 2013Q1

REPORT INFORMATION
  Report Type: Spontaneous
  Country: US (occurrence: None)
  Receive Date: 20121212
  Receipt Date: 20121212
  Transmission Date: 20140127
  Serious: No
  Sender: FDA-Public Use
  Company Number: 1208USA010893

PATIENT
  Age: 48 Year
  Sex: Female

DRUGS (3)
  1. PEGINTERFERON ALFA-2B [Suspect]
     Indication: HEPATITIS C
     Route: 058
     Dates: start: 20120711
  2. VICTRELIS [Suspect]
     Indication: HEPATITIS C
     Route: 048
     Dates: start: 20120802
  3. RIBAPAK [Suspect]
     Dosage: 600 MG MORNING 400 MG EVENING

REACTIONS (3)
  - Vomiting [None]
  - Nausea [None]
  - Weight decreased [None]
